FAERS Safety Report 15125599 (Version 2)
Quarter: 2018Q3

REPORT INFORMATION
  Report Type: Report from Study
  Country: NL (occurrence: NL)
  Receive Date: 20180710
  Receipt Date: 20180716
  Transmission Date: 20181010
  Serious: Yes (Death, Other)
  Sender: FDA-Public Use
  Company Number: NL-PFIZER INC-2018276936

PATIENT
  Age: 50 Year
  Sex: Male

DRUGS (9)
  1. DOXORUBICIN [Suspect]
     Active Substance: DOXORUBICIN
     Dosage: UNK, CYCLIC
  2. BORTEZOMIB. [Suspect]
     Active Substance: BORTEZOMIB
     Dosage: UNK UNK, CYCLIC
  3. DEXAMETHASONE. [Suspect]
     Active Substance: DEXAMETHASONE
     Dosage: UNK, CYCLIC
  4. VINCRISTINE [Suspect]
     Active Substance: VINCRISTINE
     Dosage: UNK, CYCLIC
  5. PREDNISONE. [Suspect]
     Active Substance: PREDNISONE
     Dosage: UNK, CYCLIC
  6. MELPHALAN. [Suspect]
     Active Substance: MELPHALAN
     Indication: BONE MARROW CONDITIONING REGIMEN
     Dosage: UNK
  7. CYCLOPHOSPHAMIDE. [Suspect]
     Active Substance: CYCLOPHOSPHAMIDE
     Dosage: UNK UNK, CYCLIC
  8. ADRIAMYCIN [Suspect]
     Active Substance: DOXORUBICIN HYDROCHLORIDE
     Dosage: UNK UNK, CYCLIC
  9. THALIDOMIDE [Suspect]
     Active Substance: THALIDOMIDE
     Dosage: UNK UNK, CYCLIC

REACTIONS (2)
  - Second primary malignancy [Fatal]
  - Myelodysplastic syndrome [Fatal]
